FAERS Safety Report 24640791 (Version 1)
Quarter: 2024Q4

REPORT INFORMATION
  Report Type: Spontaneous
  Country: TR (occurrence: TR)
  Receive Date: 20241120
  Receipt Date: 20241120
  Transmission Date: 20250115
  Serious: Yes (Death, Other)
  Sender: RANBAXY
  Company Number: TR-SUN PHARMACEUTICAL INDUSTRIES LTD-2024R1-479705

PATIENT
  Age: 17 Year
  Sex: Male

DRUGS (5)
  1. CARBOPLATIN [Suspect]
     Active Substance: CARBOPLATIN
     Indication: Chemotherapy
     Dosage: 250 MILLIGRAM/SQ. METER
     Route: 065
  2. ETOPOSIDE [Suspect]
     Active Substance: ETOPOSIDE
     Indication: Chemotherapy
     Dosage: 150 MILLIGRAM/SQ. METER
     Route: 065
  3. BEVACIZUMAB [Suspect]
     Active Substance: BEVACIZUMAB
     Indication: Chemotherapy
     Dosage: 10 MILLIGRAM/KILOGRAM
     Route: 065
  4. IFOSFAMIDE [Concomitant]
     Active Substance: IFOSFAMIDE
     Indication: Chemotherapy
     Dosage: 1.8 MILLIGRAM/SQ. METER
     Route: 065
  5. VORINOSTAT [Concomitant]
     Active Substance: VORINOSTAT
     Indication: Chemotherapy
     Dosage: 230 MILLIGRAM/SQ. METER, QD
     Route: 065

REACTIONS (1)
  - Disease progression [Fatal]
